FAERS Safety Report 25929236 (Version 1)
Quarter: 2025Q4

REPORT INFORMATION
  Report Type: Report from Study
  Country: CA (occurrence: CA)
  Receive Date: 20251016
  Receipt Date: 20251016
  Transmission Date: 20260117
  Serious: Yes (Death, Other)
  Sender: EMD SERONO INC
  Company Number: CA-Merck Healthcare KGaA-2025051132

PATIENT
  Age: 68 Year
  Sex: Female

DRUGS (2)
  1. REBIF [Suspect]
     Active Substance: INTERFERON BETA-1A
     Indication: Product used for unknown indication
     Dates: start: 20191124
  2. REBIF [Suspect]
     Active Substance: INTERFERON BETA-1A

REACTIONS (2)
  - Cardiac arrest [Fatal]
  - Lung neoplasm [Unknown]

NARRATIVE: CASE EVENT DATE: 20250924
